FAERS Safety Report 7936335-5 (Version None)
Quarter: 2011Q4

REPORT INFORMATION
  Report Type: 
  Country: None (occurrence: None)
  Receive Date: 20111123
  Receipt Date: 20111110
  Transmission Date: 20120403
  Serious: Yes (Hospitalization)
  Sender: FDA-Public Use
  Company Number: US-MYLANLABS-2011S1023699

PATIENT
  Age: 7 Day
  Sex: Female

DRUGS (2)
  1. VANCOMYCIN [Suspect]
     Indication: NECROTISING COLITIS
     Route: 065
  2. GENTAMICIN [Concomitant]
     Indication: NECROTISING COLITIS
     Route: 065

REACTIONS (2)
  - TOXICITY TO VARIOUS AGENTS [None]
  - RENAL IMPAIRMENT [None]
